FAERS Safety Report 15222005 (Version 2)
Quarter: 2018Q4

REPORT INFORMATION
  Report Type: Spontaneous
  Country: ES (occurrence: ES)
  Receive Date: 20180731
  Receipt Date: 20181011
  Transmission Date: 20190204
  Serious: Yes (Hospitalization, Other)
  Sender: FDA-Public Use
  Company Number: ES-MYLANLABS-2018M1055622

PATIENT
  Age: 81 Year
  Sex: Male

DRUGS (4)
  1. DILUTOL (TORASEMIDE) [Suspect]
     Active Substance: TORSEMIDE
     Indication: PRODUCT USED FOR UNKNOWN INDICATION
     Dosage: UNK
  2. LODIPRES                           /00972402/ [Interacting]
     Active Substance: AMLODIPINE BESYLATE
     Indication: PRODUCT USED FOR UNKNOWN INDICATION
     Dosage: 25 MG, UNK
     Route: 065
  3. DENVAR [Interacting]
     Active Substance: CEFIXIME
     Indication: URINARY TRACT INFECTION
     Dosage: 400 MG, UNK
     Route: 065
  4. KARVEZIDE [Interacting]
     Active Substance: HYDROCHLOROTHIAZIDE\IRBESARTAN
     Indication: PRODUCT USED FOR UNKNOWN INDICATION
     Dosage: 300MG/25MG

REACTIONS (2)
  - Drug interaction [Unknown]
  - Blood sodium decreased [Unknown]
